FAERS Safety Report 22810681 (Version 3)
Quarter: 2023Q4

REPORT INFORMATION
  Report Type: Report from Study
  Country: US (occurrence: US)
  Receive Date: 20230810
  Receipt Date: 20231004
  Transmission Date: 20240110
  Serious: Yes (Death, Other)
  Sender: FDA-Public Use
  Company Number: US-PARATEK PHARMACEUTICALS, INC.-2023PTK00371

PATIENT
  Age: 71 Year
  Sex: Female

DRUGS (1)
  1. NUZYRA [Suspect]
     Active Substance: OMADACYCLINE
     Indication: Pneumonia
     Dosage: 300 MG, 1X/DAY
     Route: 048
     Dates: start: 202209

REACTIONS (2)
  - Pneumonia [Fatal]
  - Drug ineffective [Recovered/Resolved]

NARRATIVE: CASE EVENT DATE: 20220901
